FAERS Safety Report 5593993-0 (Version None)
Quarter: 2008Q1

REPORT INFORMATION
  Report Type: 
  Country: None (occurrence: None)
  Receive Date: 20080116
  Receipt Date: 20080110
  Transmission Date: 20080703
  Serious: Yes (Hospitalization)
  Sender: FDA-Public Use
  Company Number: US-GILEAD-2007-0014642

PATIENT
  Sex: Female

DRUGS (15)
  1. LETAIRIS [Suspect]
     Indication: PULMONARY HYPERTENSION
     Route: 048
     Dates: start: 20070801
  2. LETAIRIS [Suspect]
     Route: 048
     Dates: start: 20070101, end: 20070101
  3. LETAIRIS [Suspect]
     Route: 048
     Dates: start: 20070101
  4. GABAPENTIN [Suspect]
     Route: 048
  5. REVATIO [Concomitant]
     Indication: PULMONARY HYPERTENSION
     Route: 048
  6. FLOLAN [Concomitant]
     Indication: PULMONARY HYPERTENSION
     Route: 042
  7. LASIX [Concomitant]
     Indication: FLUID OVERLOAD
     Route: 048
     Dates: end: 20071201
  8. LASIX [Concomitant]
     Route: 048
     Dates: start: 20071201, end: 20071201
  9. LASIX [Concomitant]
     Route: 048
  10. DIGOXIN [Concomitant]
  11. METHIMAZOLE [Concomitant]
     Route: 048
  12. METOCLOPRAMIDE [Concomitant]
     Route: 048
  13. POTASSIUM CHLORIDE [Concomitant]
     Route: 048
  14. HYDROXYZINE [Concomitant]
     Indication: PRURITUS
     Route: 048
  15. SPIRONOLACTONE [Concomitant]
     Route: 048

REACTIONS (1)
  - FLUID OVERLOAD [None]
